FAERS Safety Report 7345487-X (Version None)
Quarter: 2011Q1

REPORT INFORMATION
  Report Type: 
  Country: None (occurrence: None)
  Receive Date: 20110310
  Receipt Date: 20110310
  Transmission Date: 20110831
  Serious: Yes (Hospitalization)
  Sender: FDA-Public Use
  Company Number: PHHO2010JP15560

PATIENT
  Sex: Female
  Weight: 63 kg

DRUGS (8)
  1. THYRADIN [Concomitant]
  2. LOXONIN [Suspect]
  3. MELBIN [Concomitant]
  4. MUCOSTA [Concomitant]
  5. BLOPRESS [Concomitant]
  6. NORVASC [Concomitant]
  7. LIPITOR [Concomitant]
  8. ACZ885 [Suspect]
     Indication: TYPE 2 DIABETES MELLITUS
     Dosage: 50 MG, UNK
     Route: 058
     Dates: start: 20100127

REACTIONS (2)
  - GASTROINTESTINAL ENDOSCOPIC THERAPY [None]
  - COLONIC POLYP [None]
